FAERS Safety Report 7067606-5 (Version None)
Quarter: 2010Q4

REPORT INFORMATION
  Report Type: 
  Country: None (occurrence: None)
  Receive Date: 20101028
  Receipt Date: 20101014
  Transmission Date: 20110411
  Serious: Yes (Hospitalization)
  Sender: FDA-Public Use
  Company Number: US-BRISTOL-MYERS SQUIBB COMPANY-15304306

PATIENT
  Age: 76 Year
  Sex: Male
  Weight: 109 kg

DRUGS (8)
  1. CETUXIMAB [Suspect]
     Indication: NON-SMALL CELL LUNG CANCER
     Dosage: RECENT INF:30AUG10 (6TH INF)
     Route: 042
     Dates: start: 20100408, end: 20100830
  2. CARBOPLATIN [Suspect]
     Indication: NON-SMALL CELL LUNG CANCER
     Dosage: RECENT INF:05AUG10(3RD INF)
     Route: 042
     Dates: start: 20100408, end: 20100805
  3. PEMETREXED DISODIUM [Suspect]
     Indication: NON-SMALL CELL LUNG CANCER
     Dosage: RECENT INF:05AUG10(2ND INF)
     Route: 042
     Dates: start: 20100408, end: 20100805
  4. XANAX [Concomitant]
     Indication: ANXIETY
     Dosage: AS NEEDED
     Route: 048
  5. LYRICA [Concomitant]
     Indication: NEUROPATHY PERIPHERAL
     Route: 048
  6. MICARDIS [Concomitant]
     Indication: HYPERTENSION
     Route: 048
  7. FOLIC ACID [Concomitant]
     Route: 048
  8. VITAMIN B-12 [Concomitant]
     Indication: MEDICAL DIET
     Dates: start: 20100603

REACTIONS (3)
  - ASTHENIA [None]
  - DIZZINESS [None]
  - NAUSEA [None]
